FAERS Safety Report 10737139 (Version 1)
Quarter: 2015Q1

REPORT INFORMATION
  Report Type: Spontaneous
  Country: None (occurrence: None)
  Receive Date: 20150122
  Receipt Date: 20150122
  Transmission Date: 20150721
  Serious: Yes (Other)
  Sender: FDA-Public Use
  Company Number: 2015010162

PATIENT
  Age: 78 Year
  Sex: Male

DRUGS (11)
  1. METFORMIN [Concomitant]
     Active Substance: METFORMIN HYDROCHLORIDE
  2. ATORVASTATIN CALCIUM (ATORVASTATIN CALCIUM) [Concomitant]
     Active Substance: ATORVASTATIN CALCIUM
  3. VITAMIN D (ERGOCALCIFEROL) [Concomitant]
     Active Substance: ERGOCALCIFEROL
  4. SUBLINOX (ZOLPIDEM TARTRATE) (SUBLINGUAL TABLET)) [Suspect]
     Active Substance: ZOLPIDEM TARTRATE
     Route: 048
  5. METOPROLOL (METOPROLOL SUCCINATE) [Concomitant]
  6. VITALUX (PYRIDOXINE HYDROCHLORIDE, THIAMINE HYDROCHLORIDE, CYANOCOBALAMIN, RIBOFLAVIN, NICOTAMIDE, CALCIUM PANTOTHENATE) [Concomitant]
  7. FUROSEMIDE. [Concomitant]
     Active Substance: FUROSEMIDE
  8. LORAZEPAM (LORAZEPAM) [Concomitant]
     Active Substance: LORAZEPAM
  9. PRADAXA [Concomitant]
     Active Substance: DABIGATRAN ETEXILATE MESYLATE
  10. DEXILANT [Concomitant]
     Active Substance: DEXLANSOPRAZOLE
  11. LUMIGAN (BIMATOPROST) [Concomitant]

REACTIONS (3)
  - Weight increased [None]
  - Sleep-related eating disorder [None]
  - Parasomnia [None]
